FAERS Safety Report 12900584 (Version 1)
Quarter: 2016Q4

REPORT INFORMATION
  Report Type: Spontaneous
  Country: US (occurrence: US)
  Receive Date: 20161101
  Receipt Date: 20161101
  Transmission Date: 20170207
  Serious: Yes (Hospitalization)
  Sender: FDA-Public Use
  Company Number: US-RELYPSA-RLY2016003206

PATIENT
  Age: 67 Year
  Sex: Female

DRUGS (12)
  1. CALCITRIOL. [Concomitant]
     Active Substance: CALCITRIOL
  2. SODIUM BICARBONATE. [Concomitant]
     Active Substance: SODIUM BICARBONATE
  3. NIFEDIPINE. [Concomitant]
     Active Substance: NIFEDIPINE
  4. SLOW IRON [Concomitant]
  5. VELTASSA [Suspect]
     Active Substance: PATIROMER
     Indication: HYPERKALAEMIA
     Dosage: 8.4 G, QD
     Route: 048
     Dates: start: 20160326
  6. AGGRENOX [Concomitant]
     Active Substance: ASPIRIN\DIPYRIDAMOLE
  7. DOXAZOSIN MESYLATE. [Concomitant]
     Active Substance: DOXAZOSIN MESYLATE
  8. KEPPRA [Concomitant]
     Active Substance: LEVETIRACETAM
  9. CENTRUM [Concomitant]
     Active Substance: VITAMINS
  10. ZOCOR [Concomitant]
     Active Substance: SIMVASTATIN
  11. METOPROLOL SUCCINATE. [Concomitant]
     Active Substance: METOPROLOL SUCCINATE
  12. NOVOLOG [Concomitant]
     Active Substance: INSULIN ASPART

REACTIONS (1)
  - Dialysis [Not Recovered/Not Resolved]

NARRATIVE: CASE EVENT DATE: 201610
